FAERS Safety Report 25653465 (Version 1)
Quarter: 2025Q3

REPORT INFORMATION
  Report Type: Spontaneous
  Country: CN (occurrence: CN)
  Receive Date: 20250807
  Receipt Date: 20250807
  Transmission Date: 20251021
  Serious: Yes (Other)
  Sender: BAXTER
  Company Number: None

PATIENT
  Age: 43 Year
  Sex: Female
  Weight: 48 kg

DRUGS (4)
  1. CYCLOPHOSPHAMIDE [Suspect]
     Active Substance: CYCLOPHOSPHAMIDE
     Indication: Breast cancer female
     Dosage: 0.75 G, QD; IVGTT ST
     Route: 041
     Dates: start: 20250716, end: 20250716
  2. SODIUM CHLORIDE [Suspect]
     Active Substance: SODIUM CHLORIDE
     Dosage: 100 ML, QD; IVGTT ST; 0.9% COMBINED WITH CYCLOPHOSPHAMIDE
     Route: 041
     Dates: start: 20250716, end: 20250716
  3. SODIUM CHLORIDE [Suspect]
     Active Substance: SODIUM CHLORIDE
     Dosage: 100 ML, QD; IVGTT ST  0.9% COMBINED WITH EPIRUBICIN
     Route: 041
     Dates: start: 20250716, end: 20250716
  4. EPIRUBICIN [Suspect]
     Active Substance: EPIRUBICIN
     Indication: Breast cancer female
     Dosage: 120 MG ONCE DAILY; IVGTT ST
     Route: 041
     Dates: start: 20250716, end: 20250716

REACTIONS (1)
  - Nausea [Recovered/Resolved]

NARRATIVE: CASE EVENT DATE: 20250717
